FAERS Safety Report 14939339 (Version 1)
Quarter: 2018Q2

REPORT INFORMATION
  Report Type: Spontaneous
  Country: US (occurrence: US)
  Receive Date: 20180525
  Receipt Date: 20180525
  Transmission Date: 20180711
  Serious: Yes (Other)
  Sender: FDA-Public Use
  Company Number: US-SA-2018SA138457

PATIENT

DRUGS (3)
  1. GRAVOL [Suspect]
     Active Substance: DIMENHYDRINATE
     Dosage: UNK
  2. DICA [Suspect]
     Active Substance: ACECLOFENAC\DIACEREIN
  3. ZANTAC [Suspect]
     Active Substance: RANITIDINE HYDROCHLORIDE
     Dosage: UNK

REACTIONS (1)
  - Drug ineffective [Unknown]

NARRATIVE: CASE EVENT DATE: 20180509
